FAERS Safety Report 4627417-4 (Version None)
Quarter: 2005Q1

REPORT INFORMATION
  Report Type: 
  Country: None (occurrence: None)
  Receive Date: 20050331
  Receipt Date: 20050318
  Transmission Date: 20050727
  Serious: No
  Sender: FDA-Public Use
  Company Number: MEDI-0003046

PATIENT
  Age: 5 Month
  Sex: Male
  Weight: 6.2596 kg

DRUGS (3)
  1. SYNAGIS [Suspect]
     Indication: ANTIVIRAL PROPHYLAXIS
     Dosage: SEE IMAGE
     Route: 030
     Dates: start: 20041201, end: 20050315
  2. SYNAGIS [Suspect]
     Indication: ANTIVIRAL PROPHYLAXIS
     Dosage: SEE IMAGE
     Route: 030
     Dates: start: 20041201
  3. IRON (IRON) [Concomitant]

REACTIONS (2)
  - SKIN REACTION [None]
  - TYPE IV HYPERSENSITIVITY REACTION [None]
